FAERS Safety Report 22246140 (Version 1)
Quarter: 2023Q2

REPORT INFORMATION
  Report Type: Spontaneous
  Country: US (occurrence: US)
  Receive Date: 20230424
  Receipt Date: 20230424
  Transmission Date: 20230722
  Serious: Yes (Death)
  Sender: FDA-Public Use
  Company Number: US-002147023-NVSC2023US091959

PATIENT

DRUGS (6)
  1. DECITABINE [Suspect]
     Active Substance: DECITABINE
     Indication: Acute myeloid leukaemia
     Dosage: 20 MG/M2, DAY 1-10 EVERY 28 DAYS, INDUCTION UPTO 3 CYCLES
     Route: 042
  2. DECITABINE [Suspect]
     Active Substance: DECITABINE
     Dosage: 20 MG/M2, DAY 1-5 EVERY 28 DAYS, CONSOLIDATION
     Route: 042
  3. ENTOSPLETINIB [Concomitant]
     Active Substance: ENTOSPLETINIB
     Indication: Acute myeloid leukaemia
     Dosage: 400 MG, BID, LEAD IN
     Route: 065
  4. ENTOSPLETINIB [Concomitant]
     Active Substance: ENTOSPLETINIB
     Dosage: 400 MG, BID, INDUCTION UPTO 3 CYCLES
     Route: 065
  5. ENTOSPLETINIB [Concomitant]
     Active Substance: ENTOSPLETINIB
     Dosage: 400 MG, BID, CONSOLIDATION
     Route: 065
  6. ENTOSPLETINIB [Concomitant]
     Active Substance: ENTOSPLETINIB
     Dosage: 400 MG, BID, MAINTENANCE EVERY 28 DAYS UPTO 2 YEARS
     Route: 065

REACTIONS (1)
  - Sepsis [Fatal]
